FAERS Safety Report 24348329 (Version 1)
Quarter: 2024Q3

REPORT INFORMATION
  Report Type: Report from Study
  Country: US (occurrence: US)
  Receive Date: 20240923
  Receipt Date: 20240923
  Transmission Date: 20241016
  Serious: Yes (Other)
  Sender: ABBVIE
  Company Number: US-ABBVIE-5931039

PATIENT
  Sex: Male

DRUGS (1)
  1. RINVOQ [Suspect]
     Active Substance: UPADACITINIB
     Indication: Psoriatic arthropathy
     Dosage: LAST ADMIN DATE: 2024?STRENGTH: 15 MG
     Route: 048
     Dates: start: 202402

REACTIONS (1)
  - Tonsillar neoplasm [Unknown]

NARRATIVE: CASE EVENT DATE: 20240101
